FAERS Safety Report 8742909 (Version 2)
Quarter: 2012Q4

REPORT INFORMATION
  Report Type: 
  Country: JP (occurrence: JP)
  Receive Date: 20120824
  Receipt Date: 20121115
  Transmission Date: 20130627
  Serious: Yes (Hospitalization, Other)
  Sender: FDA-Public Use
  Company Number: JP-009507513-1208JPN004829

PATIENT
  Age: 68 Year
  Sex: Female
  Weight: 59 kg

DRUGS (13)
  1. PEGINTRON [Suspect]
     Indication: HEPATITIS C
     Dosage: 0.83 Microgram per kilogram, qw
     Route: 058
     Dates: start: 20120426, end: 20120501
  2. PEGINTRON [Suspect]
     Dosage: 0.42 Microgram per kilogram, qw
     Route: 058
     Dates: start: 20120502, end: 20120530
  3. PEGINTRON [Suspect]
     Dosage: 0.21 Microgram per kilogram, UNK
     Route: 058
     Dates: start: 20120530
  4. PEGINTRON [Suspect]
     Dosage: 0.08 UNK, UNK
     Route: 058
     Dates: start: 20120614, end: 20120622
  5. REBETOL [Suspect]
     Indication: HEPATITIS C
     Dosage: 400 mg, qd
     Route: 048
     Dates: start: 20120426, end: 20120516
  6. REBETOL [Suspect]
     Dosage: 200 mg, qd
     Route: 048
     Dates: start: 20120517, end: 20120628
  7. TELAVIC [Suspect]
     Indication: HEPATITIS C
     Dosage: 1500 mg, qd
     Route: 048
     Dates: start: 20120426, end: 20120628
  8. PARIET [Concomitant]
     Indication: PROPHYLAXIS
     Dosage: 10 mg, UNK
     Route: 048
     Dates: start: 20120426
  9. PARIET [Concomitant]
     Indication: DYSPEPSIA
  10. TALION (BEPOTASTINE BESYLATE) [Concomitant]
     Indication: PROPHYLAXIS
     Dosage: 10 mg, bid
     Route: 048
     Dates: start: 20120426
  11. TALION (BEPOTASTINE BESYLATE) [Concomitant]
     Dosage: UNK
     Route: 048
     Dates: start: 20120628
  12. ZYLORIC [Concomitant]
     Indication: HYPERURICAEMIA
     Dosage: 100 mg, tid
     Route: 048
     Dates: start: 20120502, end: 20120628
  13. PRIMPERAN [Concomitant]
     Indication: PROPHYLAXIS
     Dosage: UNK, prn
     Route: 048
     Dates: start: 20120426, end: 20120628

REACTIONS (2)
  - Bone marrow failure [Recovered/Resolved]
  - Hyperuricaemia [None]
